FAERS Safety Report 7582259-5 (Version None)
Quarter: 2011Q2

REPORT INFORMATION
  Report Type: 
  Country: None (occurrence: None)
  Receive Date: 20110622
  Receipt Date: 20110618
  Transmission Date: 20111010
  Serious: Yes (Hospitalization)
  Sender: FDA-Public Use
  Company Number: B0475431A

PATIENT
  Sex: Female

DRUGS (3)
  1. MALARONE [Suspect]
     Indication: MALARIA PROPHYLAXIS
     Dosage: 1 TABLET/ PER DAY/ ORAL
     Route: 048
     Dates: start: 20061208, end: 20061218
  2. AUGMENTIN '125' [Suspect]
     Dosage: ORAL
     Route: 048
     Dates: start: 20061215, end: 20061218
  3. TELITHROMYCIN [Concomitant]

REACTIONS (13)
  - DYSPNOEA [None]
  - RASH MACULO-PAPULAR [None]
  - MALAISE [None]
  - RESPIRATORY DISTRESS [None]
  - PULMONARY EOSINOPHILIA [None]
  - FATIGUE [None]
  - URTICARIA [None]
  - RALES [None]
  - PRURITUS [None]
  - DRUG HYPERSENSITIVITY [None]
  - HYPERTHERMIA [None]
  - COUGH [None]
  - TACHYPNOEA [None]
